FAERS Safety Report 8021797-8 (Version None)
Quarter: 2012Q1

REPORT INFORMATION
  Report Type: 
  Country: None (occurrence: None)
  Receive Date: 20120104
  Receipt Date: 20111229
  Transmission Date: 20120608
  Serious: No
  Sender: FDA-Public Use
  Company Number: US-BAYER-2011-124601

PATIENT
  Sex: Female

DRUGS (1)
  1. MIRENA [Suspect]
     Indication: CONTRACEPTION
     Dosage: 20 MCG/24HR, CONT (1 UNIT)
     Dates: start: 20070101

REACTIONS (3)
  - DYSPEPSIA [None]
  - ABDOMINAL PAIN [None]
  - VAGINAL DISCHARGE [None]
